FAERS Safety Report 9931471 (Version 2)
Quarter: 2014Q1

REPORT INFORMATION
  Report Type: Spontaneous
  Country: US (occurrence: US)
  Receive Date: 20140228
  Receipt Date: 20140306
  Transmission Date: 20141002
  Serious: Yes (Hospitalization)
  Sender: FDA-Public Use
  Company Number: US-SUN PHARMACEUTICAL INDUSTRIES LTD-2014SUN00419

PATIENT
  Sex: 0

DRUGS (5)
  1. DOXYCYCLINE HYCLATE CAPSULES, USP 100 MG [Suspect]
     Indication: BRONCHITIS
     Dosage: 100 MG, BID
     Route: 065
     Dates: start: 20140127, end: 20140206
  2. DOXYCYCLINE HYCLATE CAPSULES, USP 100 MG [Suspect]
     Indication: SINUSITIS
  3. DOXYCYCLINE HYCLATE TABLETS, USP 100 MG [Suspect]
     Indication: BRONCHITIS
     Dosage: 100 MG, BID
     Route: 065
     Dates: start: 20140210, end: 20140214
  4. DOXYCYCLINE HYCLATE TABLETS, USP 100 MG [Suspect]
     Indication: SINUSITIS
  5. ORTHO-NOVUM [Concomitant]

REACTIONS (4)
  - Dehydration [Recovered/Resolved]
  - Dysgeusia [Recovered/Resolved]
  - Hypoaesthesia oral [Recovered/Resolved]
  - Vomiting [Recovered/Resolved]
